FAERS Safety Report 8943430 (Version 1)
Quarter: 2012Q4

REPORT INFORMATION
  Report Type: 
  Country: US (occurrence: US)
  Receive Date: 20121204
  Receipt Date: 20121204
  Transmission Date: 20130627
  Serious: Yes (Congenital Anomaly, Other)
  Sender: FDA-Public Use
  Company Number: US-PFIZER INC-2012300602

PATIENT
  Sex: Female

DRUGS (4)
  1. ZOLOFT [Suspect]
     Dosage: 50 mg, 1x/day, at bed time
     Route: 064
     Dates: start: 20001128
  2. ZOLOFT [Suspect]
     Dosage: 100 mg, 1x/day, at bed time
     Route: 064
     Dates: start: 20010227
  3. PRILOSEC [Concomitant]
     Dosage: 20 mg, UNK
     Route: 064
     Dates: start: 20010227
  4. BRETHINE [Concomitant]
     Dosage: 2.5 mg, 3x/day
     Route: 064
     Dates: start: 20010720

REACTIONS (3)
  - Maternal exposure timing unspecified [Unknown]
  - Patent ductus arteriosus [Unknown]
  - Left atrial dilatation [Unknown]
